FAERS Safety Report 10025224 (Version 1)
Quarter: 2014Q1

REPORT INFORMATION
  Report Type: Spontaneous
  Country: US (occurrence: None)
  Receive Date: 20140218
  Receipt Date: 20140218
  Transmission Date: 20141002
  Serious: Yes (Other)
  Sender: FDA-Public Use
  Company Number: AEUSA201300445

PATIENT
  Sex: Female

DRUGS (2)
  1. FLEBOGAMMA [Suspect]
     Indication: PRODUCT USED FOR UNKNOWN INDICATION
     Route: 042
     Dates: start: 20131203, end: 20131204
  2. PRIVIGEN [Concomitant]

REACTIONS (1)
  - Loss of consciousness [None]
